FAERS Safety Report 4999314-6 (Version None)
Quarter: 2006Q2

REPORT INFORMATION
  Report Type: 
  Country: None (occurrence: None)
  Receive Date: 20060511
  Receipt Date: 20060417
  Transmission Date: 20061013
  Serious: Yes (Other)
  Sender: FDA-Public Use
  Company Number: PK-ABBOTT-06P-124-0331087-00

PATIENT
  Age: 11 Year
  Sex: Male
  Weight: 30 kg

DRUGS (4)
  1. KLARICID INJECTION [Suspect]
     Indication: TONSILLITIS
     Route: 042
  2. DEXAMETHASONE [Concomitant]
     Indication: STEROID THERAPY
     Route: 040
  3. PHENIRAMINE AMINOSALICYLATE [Concomitant]
     Indication: ANTIALLERGIC THERAPY
     Route: 040
  4. NEUROBION FOR INJECTION [Concomitant]
     Indication: VITAMIN B COMPLEX DEFICIENCY
     Route: 040

REACTIONS (3)
  - CYANOSIS [None]
  - DISORIENTATION [None]
  - MALAISE [None]
